FAERS Safety Report 18627203 (Version 2)
Quarter: 2021Q1

REPORT INFORMATION
  Report Type: Spontaneous
  Country: US (occurrence: US)
  Receive Date: 20201217
  Receipt Date: 20210111
  Transmission Date: 20210419
  Serious: Yes (Other)
  Sender: FDA-Public Use
  Company Number: US-ELI_LILLY_AND_COMPANY-US202012006885

PATIENT
  Sex: Female

DRUGS (2)
  1. FORTEO [Suspect]
     Active Substance: TERIPARATIDE
     Dosage: 20 UG, UNKNOWN
     Route: 065
  2. FORTEO [Suspect]
     Active Substance: TERIPARATIDE
     Indication: PRODUCT USED FOR UNKNOWN INDICATION
     Dosage: 20 UG, UNKNOWN
     Route: 065
     Dates: start: 20201005

REACTIONS (8)
  - Acute kidney injury [Unknown]
  - Hypercalcaemia [Unknown]
  - Pain in extremity [Unknown]
  - Nocturia [Unknown]
  - Blood magnesium decreased [Unknown]
  - Blood alkaline phosphatase increased [Unknown]
  - Feeling abnormal [Unknown]
  - Sleep disorder due to general medical condition, insomnia type [Unknown]
